FAERS Safety Report 23752019 (Version 1)
Quarter: 2024Q2

REPORT INFORMATION
  Report Type: Report from Study
  Country: US (occurrence: None)
  Receive Date: 20240417
  Receipt Date: 20240417
  Transmission Date: 20240716
  Serious: Yes (Hospitalization)
  Sender: FDA-Public Use
  Company Number: 2024A086714

PATIENT
  Sex: Female

DRUGS (1)
  1. TRUQAP [Suspect]
     Active Substance: CAPIVASERTIB
     Indication: Breast cancer female
     Dosage: 200MG 2 TABS TWICE DAILY FOR 4 DAYS ON, 3 DAYS OFF EACH WEEK
     Route: 048
     Dates: start: 20240223

REACTIONS (6)
  - Cerebral disorder [Unknown]
  - Disorientation [Unknown]
  - Arthropathy [Unknown]
  - Skin ulcer [Unknown]
  - Rash [Unknown]
  - Pruritus [Unknown]
